FAERS Safety Report 8111712-0 (Version None)
Quarter: 2012Q1

REPORT INFORMATION
  Report Type: 
  Country: None (occurrence: None)
  Receive Date: 20120203
  Receipt Date: 20120130
  Transmission Date: 20120608
  Serious: Yes (Death)
  Sender: FDA-Public Use
  Company Number: US-US-EMD SERONO, INC.-7109902

PATIENT
  Sex: Male

DRUGS (2)
  1. UNSPECIFIED MEDICATIONS (TOO MANY TO LIST) [Concomitant]
  2. EGRIFTA [Suspect]
     Indication: LIPODYSTROPHY ACQUIRED
     Route: 058
     Dates: start: 20110101

REACTIONS (3)
  - CHEST PAIN [None]
  - DEATH [None]
  - HEADACHE [None]
